FAERS Safety Report 6292780-8 (Version None)
Quarter: 2009Q3

REPORT INFORMATION
  Report Type: 
  Country: None (occurrence: None)
  Receive Date: 20090729
  Receipt Date: 20090720
  Transmission Date: 20100115
  Serious: Yes (Other)
  Sender: FDA-Public Use
  Company Number: ADR8082009

PATIENT
  Age: 70 Year
  Sex: Female

DRUGS (8)
  1. ALENDRONIC ACID (MFR: UNKNOWN) [Suspect]
     Dosage: 70 MG WEEKLY ORAL USE
     Route: 048
  2. ADCAL-D3 [Concomitant]
  3. ASPIRIN [Concomitant]
  4. BENDROFLUMETHLAZIDE [Concomitant]
  5. DOCUSATE [Concomitant]
  6. METFORMIN [Concomitant]
  7. RAMIPRIL [Concomitant]
  8. SIMVASTATIN [Concomitant]

REACTIONS (1)
  - DEPRESSION [None]
